FAERS Safety Report 6327699-7 (Version None)
Quarter: 2009Q3

REPORT INFORMATION
  Report Type: 
  Country: None (occurrence: None)
  Receive Date: 20090825
  Receipt Date: 20090824
  Transmission Date: 20100115
  Serious: Yes (Other)
  Sender: FDA-Public Use
  Company Number: GB-WYE-G04290009

PATIENT
  Age: 94 Year
  Sex: Female

DRUGS (7)
  1. TAZOCIN [Suspect]
     Indication: LOWER RESPIRATORY TRACT INFECTION
     Route: 042
     Dates: start: 20090808, end: 20090810
  2. TAZOCIN [Suspect]
     Dosage: UNKNOWN
     Dates: start: 20090811, end: 20090801
  3. TRIMETHOPRIM [Concomitant]
     Dosage: UNKNOWN
  4. DOXYCYCLINE [Concomitant]
     Dosage: UNKNOWN
  5. FLUDROCORTISONE [Concomitant]
     Dosage: UNKNOWN
  6. CHLORAMPHENICOL [Concomitant]
     Dosage: UNKNOWN
  7. CITALOPRAM [Concomitant]
     Dosage: UNKNOWN

REACTIONS (3)
  - CONDITION AGGRAVATED [None]
  - HYPOKALAEMIA [None]
  - LOWER RESPIRATORY TRACT INFECTION [None]
